FAERS Safety Report 21137941 (Version 3)
Quarter: 2023Q1

REPORT INFORMATION
  Report Type: Spontaneous
  Country: US (occurrence: US)
  Receive Date: 20220727
  Receipt Date: 20230103
  Transmission Date: 20230417
  Serious: Yes (Other)
  Sender: FDA-Public Use
  Company Number: US-PFIZER INC-202200009684

PATIENT
  Age: 39 Year
  Sex: Female

DRUGS (1)
  1. IBRANCE [Suspect]
     Active Substance: PALBOCICLIB
     Dosage: 100 MG

REACTIONS (6)
  - Neuropathy peripheral [Unknown]
  - Palpitations [Unknown]
  - Hypertension [Unknown]
  - Abdominal distension [Unknown]
  - Fatigue [Unknown]
  - Product dose omission issue [Unknown]
